FAERS Safety Report 10040785 (Version 2)
Quarter: 2014Q1

REPORT INFORMATION
  Report Type: Spontaneous
  Country: US (occurrence: US)
  Receive Date: 20140327
  Receipt Date: 20140327
  Transmission Date: 20141002
  Serious: Yes (Hospitalization, Other)
  Sender: FDA-Public Use
  Company Number: PHHY2013US035945

PATIENT
  Age: 6 Year
  Sex: Female

DRUGS (22)
  1. BACLOFEN INTRATHECAL [Suspect]
     Indication: MUSCLE SPASTICITY
     Dosage: ADULT SIZE BOLUS (UNK)
     Route: 037
     Dates: start: 20130306
  2. BACLOFEN INTRATHECAL [Suspect]
     Dosage: 50 UG/DAY
     Route: 037
  3. BACLOFEN INTRATHECAL [Suspect]
     Dosage: 60 UG/DAY
     Route: 037
     Dates: end: 20130401
  4. BACLOFEN INTRATHECAL [Suspect]
     Dosage: 53 UG/DAY
     Route: 037
     Dates: end: 20140318
  5. LIORESAL [Suspect]
     Dosage: 0.75 DF BY MOUTH 3 TIMES PER DAY
     Route: 048
  6. TRILEPTAL [Suspect]
     Dosage: 4.5 DF BY MOUTH EVERY 12 HOURS, CRUSH AND MIX WITH PUREED FOOD
     Route: 048
  7. DIASTAT ACUDIAL [Suspect]
     Indication: CONVULSION
     Dosage: 10 MG, GREATER THAN THREE MINUTES, REPEAT IN 12 HOURS IF NEEDED, THREE DOSEPACKS = 6 SYRINGES
     Route: 054
  8. VERSED [Suspect]
     Indication: CONVULSION
     Dosage: 0.9 ML, UNK
  9. VALIUM [Suspect]
     Dosage: 3 MG TWICE DAILY AND 4 MG AT BEDTIME
  10. KEPPRA [Suspect]
     Dosage: 4 ML BY MOUTH EVERY 12 HOURS
     Route: 048
  11. MIRALAX [Suspect]
     Indication: CONSTIPATION
     Dosage: 1 CAPFUL BY MOUTH MIXED WITH 8 OZ OF LIQUID AS NEDEED
     Route: 048
  12. ZONEGRAN [Suspect]
     Dosage: 1 DF BY MOUTH TWICE DAILY
     Route: 048
  13. SENOKOT /USA/ [Suspect]
     Dosage: 1.5 DF BY MOUTH ONCE DAILY
     Route: 048
  14. SENNA [Suspect]
  15. CLARITIN [Suspect]
     Dosage: 5 ML BY MOUTH ONCE DAILY
     Route: 048
  16. PROVENTIL SOLUTION [Concomitant]
     Indication: WHEEZING
     Dosage: 3 ML BY NEBULIZATION ONE TIME ONLY IF NEEDED
     Route: 055
  17. ANCEF [Concomitant]
     Indication: PAIN
     Dosage: 5 ML, INTRAVENOUS, INTR-OPERATIVE
     Route: 042
  18. KEFZOL [Concomitant]
     Indication: PAIN
     Dosage: 5 ML INTRAVENOUS, INTR-OPERATIVE
     Route: 042
  19. L.M.X.5 [Concomitant]
     Indication: PAIN
     Dosage: ONE APPLICATION EXTERNALLY AS NEEDED
     Route: 003
  20. ROXICET [Concomitant]
     Dosage: 1.8 MG BY MOUTH ONE TIME, BEFORE PROCEDURE
     Route: 048
  21. SALINE [Concomitant]
     Dosage: 20 ML, Q8H
     Route: 042
  22. VERSED [Concomitant]
     Dosage: 4.45 ML BY MOUTH ONE TIME ONLY BEFORE PROCEDURE
     Route: 048

REACTIONS (16)
  - Altered state of consciousness [Recovering/Resolving]
  - Clonus [Recovering/Resolving]
  - Discomfort [Recovering/Resolving]
  - Unevaluable event [Recovering/Resolving]
  - Sedation [Recovering/Resolving]
  - Hypothermia [Recovering/Resolving]
  - Body temperature decreased [Recovering/Resolving]
  - Somnolence [Unknown]
  - Lethargy [Recovering/Resolving]
  - Hypertonia [Recovering/Resolving]
  - Hypotonia [Recovering/Resolving]
  - Muscle tightness [Recovering/Resolving]
  - Overdose [Recovering/Resolving]
  - Convulsion [Recovering/Resolving]
  - Muscle spasms [Recovering/Resolving]
  - Therapeutic response decreased [Recovering/Resolving]
